FAERS Safety Report 8293877-3 (Version None)
Quarter: 2012Q2

REPORT INFORMATION
  Report Type: 
  Country: None (occurrence: None)
  Receive Date: 20120418
  Receipt Date: 20120415
  Transmission Date: 20120825
  Serious: No
  Sender: FDA-Public Use
  Company Number: US-PFIZER INC-2012075296

PATIENT
  Sex: Female
  Weight: 67.12 kg

DRUGS (2)
  1. OXYCODONE HYDROCHLORIDE [Suspect]
     Indication: PAIN
     Dosage: 325 MG DAILY
  2. IBUPROFEN (ADVIL) [Suspect]
     Indication: PAIN
     Dosage: UNK
     Route: 048

REACTIONS (1)
  - POOR QUALITY DRUG ADMINISTERED [None]
